FAERS Safety Report 18061843 (Version 1)
Quarter: 2020Q3

REPORT INFORMATION
  Report Type: Report from Study
  Country: US (occurrence: US)
  Receive Date: 20200723
  Receipt Date: 20200723
  Transmission Date: 20201103
  Serious: Yes (Other)
  Sender: FDA-Public Use
  Company Number: US-MYLANLABS-2020M1065682

PATIENT
  Age: 4 Year
  Sex: Female
  Weight: 19.9 kg

DRUGS (5)
  1. VINCRISTINE SULFATE. [Suspect]
     Active Substance: VINCRISTINE SULFATE
     Indication: EMBRYONAL RHABDOMYOSARCOMA
     Dosage: 1.5 MILLIGRAM/SQ. METER, CYCLE, (DAYS 1, 8, AND 15)
     Route: 042
     Dates: start: 20200422, end: 20200602
  2. DACTINOMYCIN [Suspect]
     Active Substance: DACTINOMYCIN
     Indication: EMBRYONAL RHABDOMYOSARCOMA
     Dosage: 0.05 MILLIGRAM/KILOGRAM, CYCLE, (ON DAY 1 OF CYCLES 1 AND 3)
     Route: 042
     Dates: start: 20200422, end: 20200602
  3. TEMSIROLIMUS. [Suspect]
     Active Substance: TEMSIROLIMUS
     Indication: EMBRYONAL RHABDOMYOSARCOMA
     Dosage: 15 MILLIGRAM/SQ. METER, CYCLE, (ON DAYS 1, 8, AND 15)
     Route: 042
     Dates: start: 20200422, end: 20200609
  4. IRINOTECAN HCL [Suspect]
     Active Substance: IRINOTECAN HYDROCHLORIDE
     Indication: EMBRYONAL RHABDOMYOSARCOMA
     Dosage: 50 MILLIGRAM/SQ. METER, (ON DAYS 1?5 OF CYCLES 2 AND 4)
     Route: 042
     Dates: start: 20200512, end: 20200516
  5. CYCLOPHOSPHAMIDE. [Suspect]
     Active Substance: CYCLOPHOSPHAMIDE
     Indication: EMBRYONAL RHABDOMYOSARCOMA
     Dosage: 1200 MILLIGRAM/SQ. METER, CYCLE, (ON DAY 1 OF CYCLES 1 AND 3)
     Route: 042
     Dates: start: 20200422, end: 20200602

REACTIONS (1)
  - Proteinuria [Not Recovered/Not Resolved]

NARRATIVE: CASE EVENT DATE: 20200616
